FAERS Safety Report 19808664 (Version 1)
Quarter: 2021Q3

REPORT INFORMATION
  Report Type: Spontaneous
  Country: JP (occurrence: JP)
  Receive Date: 20210909
  Receipt Date: 20210909
  Transmission Date: 20211014
  Serious: Yes (Death)
  Sender: FDA-Public Use
  Company Number: NVSJ2021JP013347

PATIENT
  Age: 72 Year
  Sex: Female

DRUGS (4)
  1. CAPECITABINE. [Concomitant]
     Active Substance: CAPECITABINE
     Indication: PANCREATIC CARCINOMA
  2. TYKERB [Suspect]
     Active Substance: LAPATINIB DITOSYLATE
     Indication: PANCREATIC CARCINOMA
  3. CAPECITABINE. [Concomitant]
     Active Substance: CAPECITABINE
     Indication: HEPATOBILIARY CANCER
     Dosage: UNK
     Route: 065
  4. TYKERB [Suspect]
     Active Substance: LAPATINIB DITOSYLATE
     Indication: HEPATOBILIARY CANCER
     Dosage: UNK
     Route: 065

REACTIONS (4)
  - Product use in unapproved indication [Unknown]
  - Hepatobiliary cancer [Fatal]
  - Pancreatic carcinoma [Fatal]
  - Malignant neoplasm progression [Fatal]
